FAERS Safety Report 13485154 (Version 1)
Quarter: 2017Q2

REPORT INFORMATION
  Report Type: Spontaneous
  Country: FR (occurrence: FR)
  Receive Date: 20170425
  Receipt Date: 20170425
  Transmission Date: 20170830
  Serious: Yes (Hospitalization)
  Sender: FDA-Public Use
  Company Number: FR-ACCORD-050553

PATIENT
  Age: 64 Year
  Sex: Female

DRUGS (4)
  1. FLUOROURACIL. [Concomitant]
     Active Substance: FLUOROURACIL
     Route: 042
     Dates: start: 201508
  2. DOCETAXEL ACCORD [Suspect]
     Active Substance: DOCETAXEL
     Indication: BREAST CANCER
     Route: 042
     Dates: start: 20151124, end: 20151215
  3. FARMORUBICINE [Concomitant]
     Active Substance: EPIRUBICIN HYDROCHLORIDE
     Route: 042
     Dates: start: 201508
  4. ENDOXAN [Concomitant]
     Active Substance: CYCLOPHOSPHAMIDE
     Route: 042
     Dates: start: 201508

REACTIONS (5)
  - Acute generalised exanthematous pustulosis [Recovered/Resolved]
  - Eyelid oedema [Recovered/Resolved]
  - Erythema [Recovered/Resolved]
  - Rash pustular [Recovered/Resolved]
  - Dermatitis exfoliative [Recovered/Resolved]

NARRATIVE: CASE EVENT DATE: 201512
